FAERS Safety Report 6447734-5 (Version None)
Quarter: 2009Q4

REPORT INFORMATION
  Report Type: 
  Country: None (occurrence: None)
  Receive Date: 20091120
  Receipt Date: 20091113
  Transmission Date: 20100525
  Serious: Yes (Other)
  Sender: FDA-Public Use
  Company Number: US-BIOGENIDEC-2009BI026644

PATIENT
  Age: 53 Year
  Sex: Male

DRUGS (8)
  1. AVONEX [Suspect]
     Indication: MULTIPLE SCLEROSIS
     Route: 030
     Dates: start: 20030215
  2. PREDNISONE [Concomitant]
  3. FLEXERIL [Concomitant]
  4. KLONOPIN [Concomitant]
  5. QUINAPRIL HCTZ [Concomitant]
  6. TRAZODONE HCL [Concomitant]
  7. LODINE [Concomitant]
  8. CRESTOR [Concomitant]

REACTIONS (1)
  - MALIGNANT MELANOMA [None]
